FAERS Safety Report 15754772 (Version 2)
Quarter: 2019Q1

REPORT INFORMATION
  Report Type: Spontaneous
  Country: US (occurrence: US)
  Receive Date: 20181224
  Receipt Date: 20190208
  Transmission Date: 20190417
  Serious: Yes (Other)
  Sender: FDA-Public Use
  Company Number: US-TEVA-2018-US-990237

PATIENT
  Sex: Female

DRUGS (8)
  1. AMLODIPINE/VALSARTAN/HYDROCHLOROTHIAZIDE [Suspect]
     Active Substance: AMLODIPINE\HYDROCHLOROTHIAZIDE\VALSARTAN
     Indication: HYPERTENSION
     Dosage: 10 MG/320 MG/25 MG
     Dates: start: 201708, end: 20181211
  2. LOSARTAN. [Concomitant]
     Active Substance: LOSARTAN
  3. HYDROCHLOROTHIAZIDE. [Concomitant]
     Active Substance: HYDROCHLOROTHIAZIDE
  4. FUROSEMIDE. [Concomitant]
     Active Substance: FUROSEMIDE
  5. ANAGRELIDE. [Concomitant]
     Active Substance: ANAGRELIDE HYDROCHLORIDE
  6. LEVOTHYROXINE. [Concomitant]
     Active Substance: LEVOTHYROXINE
  7. HYDROXYUREA. [Concomitant]
     Active Substance: HYDROXYUREA
  8. TOPROL XL [Concomitant]
     Active Substance: METOPROLOL SUCCINATE

REACTIONS (3)
  - Breast cancer [Unknown]
  - Recalled product administered [Unknown]
  - Cancer in remission [Unknown]

NARRATIVE: CASE EVENT DATE: 201709
